FAERS Safety Report 16944163 (Version 1)
Quarter: 2019Q4

REPORT INFORMATION
  Report Type: Other
  Country: IT (occurrence: IT)
  Receive Date: 20191022
  Receipt Date: 20191022
  Transmission Date: 20200122
  Serious: Yes (Life-Threatening, Other)
  Sender: FDA-Public Use
  Company Number: IT-EMCURE PHARMACEUTICALS LTD-2019-EPL-0950

PATIENT
  Age: 45 Year
  Sex: Male

DRUGS (10)
  1. DEXAMETHASONE. [Suspect]
     Active Substance: DEXAMETHASONE
     Dosage: ADMINISTERED ON DAYS 1-4
     Route: 042
  2. THALIDOMIDE [Suspect]
     Active Substance: THALIDOMIDE
     Indication: PLASMA CELL MYELOMA
     Dosage: 100 MILLIGRAM,DAILY,ADMINISTERED ON DAYS 1-21 DAYS IN A 21-DAY CYCLE, RECEIVED 3 CYCLES.
     Route: 065
  3. DEXAMETHASONE. [Suspect]
     Active Substance: DEXAMETHASONE
     Indication: PLASMA CELL MYELOMA
     Dosage: AS A PART OF VTD REGIMEN: ADMINISTERED ON DAYS 1, 4, 8, 11 IN A 21-DAY CYCLE, RECEIVED 3 CYCLES
     Route: 048
  4. CISPLATIN. [Suspect]
     Active Substance: CISPLATIN
     Indication: PLASMA CELL MYELOMA
     Dosage: 15 MILLIGRAM/SQ. METER,DAILY
     Route: 065
  5. CYCLOPHOSPHAMIDE. [Suspect]
     Active Substance: CYCLOPHOSPHAMIDE
     Indication: PLASMA CELL MYELOMA
     Dosage: 400 MILLIGRAM/SQ. METER,DAILY,FOR 4 DAYS
     Route: 065
  6. LENALIDOMIDE [Concomitant]
     Active Substance: LENALIDOMIDE
     Indication: PLASMA CELL MYELOMA
     Dosage: 25 MILLIGRAM,ADMINISTERED ON DAYS 1-21 IN A 28-DAY CYCLE.
     Route: 048
  7. BORTEZOMIB. [Suspect]
     Active Substance: BORTEZOMIB
     Indication: PLASMA CELL MYELOMA
     Dosage: ADMINISTERED BIWEEKLY ON DAYS 1, 4, 8, 11 IN A 21-DAY CYCLE, RECEIVED 3 CYCLES.
     Route: 058
  8. CARFILZOMIB [Concomitant]
     Active Substance: CARFILZOMIB
     Indication: PLASMA CELL MYELOMA
     Dosage: 27 MILLIGRAM/SQ. METER,ADMINISTERED ON DAYS 1, 2, 8, 9, 15 AND 16 IN A 28-DAY CYCLE.
     Route: 042
  9. ZOLEDRONIC ACID [Suspect]
     Active Substance: ZOLEDRONIC ACID
     Indication: PLASMA CELL MYELOMA
     Dosage: 1 MONTHLY,RECEIVED 3 CYCLES
     Route: 041
  10. ETOPOSIDE. [Suspect]
     Active Substance: ETOPOSIDE
     Indication: PLASMA CELL MYELOMA
     Dosage: 40 MILLIGRAM/SQ. METER,DAILY,IV INFUSION,CONTINUOUS INFUSION OVER 24 HOURS

REACTIONS (3)
  - Neutropenia [Recovered/Resolved]
  - Treatment failure [Unknown]
  - Thrombocytopenia [Recovered/Resolved]
